FAERS Safety Report 16204245 (Version 1)
Quarter: 2019Q2

REPORT INFORMATION
  Report Type: Spontaneous
  Country: IT (occurrence: IT)
  Receive Date: 20190416
  Receipt Date: 20190416
  Transmission Date: 20190711
  Serious: Yes (Other)
  Sender: FDA-Public Use
  Company Number: IT-UCBSA-2019015636

PATIENT
  Age: 46 Year
  Sex: Male

DRUGS (3)
  1. FRISIUM [Suspect]
     Active Substance: CLOBAZAM
     Indication: PARTIAL SEIZURES
     Dosage: 20MG, 1 DAY
     Route: 048
  2. KEPPRA [Suspect]
     Active Substance: LEVETIRACETAM
     Indication: PARTIAL SEIZURES
     Dosage: 3000MG, 1 DAY
     Route: 048
  3. LAMICTAL [Suspect]
     Active Substance: LAMOTRIGINE
     Indication: PRODUCT USED FOR UNKNOWN INDICATION
     Dosage: 300MG, 1 DAY
     Route: 048

REACTIONS (3)
  - Partial seizures [Recovering/Resolving]
  - Condition aggravated [Recovering/Resolving]
  - Drug resistance [Recovering/Resolving]

NARRATIVE: CASE EVENT DATE: 20190326
